FAERS Safety Report 25073451 (Version 5)
Quarter: 2025Q2

REPORT INFORMATION
  Report Type: Spontaneous
  Country: JP (occurrence: JP)
  Receive Date: 20250313
  Receipt Date: 20250410
  Transmission Date: 20250717
  Serious: Yes (Death, Other)
  Sender: MERCK SHARP AND DOHME
  Company Number: JP-009507513-2262482

PATIENT
  Age: 77 Year
  Sex: Female

DRUGS (3)
  1. KEYTRUDA [Suspect]
     Active Substance: PEMBROLIZUMAB
     Indication: Uterine cancer
     Dosage: 200 MG, Q3W, ADMINISTERED ONCE; STRENGTH: 100 MG
     Route: 041
     Dates: start: 20250225, end: 20250225
  2. LENVIMA [Suspect]
     Active Substance: LENVATINIB
     Indication: Uterine cancer
     Dosage: 20 MG,QD ( ONCE)
     Route: 048
     Dates: start: 20250225, end: 20250225
  3. ELIQUIS [Suspect]
     Active Substance: APIXABAN
     Indication: Thrombosis
     Route: 065

REACTIONS (13)
  - Hypovolaemic shock [Fatal]
  - Haemoglobin decreased [Unknown]
  - Malignant neoplasm progression [Fatal]
  - Hyperkalaemia [Unknown]
  - Peripheral vein thrombosis [Unknown]
  - Cardiac arrest [Fatal]
  - Hepatic function abnormal [Fatal]
  - Depressed level of consciousness [Unknown]
  - Tumour haemorrhage [Unknown]
  - Depressed level of consciousness [Recovered/Resolved]
  - Genital haemorrhage [Unknown]
  - Hepatic ischaemia [Unknown]
  - Blood creatinine abnormal [Unknown]

NARRATIVE: CASE EVENT DATE: 20250101
